FAERS Safety Report 5778860-1 (Version None)
Quarter: 2008Q2

REPORT INFORMATION
  Report Type: 
  Country: None (occurrence: None)
  Receive Date: 20080619
  Receipt Date: 20080613
  Transmission Date: 20081010
  Serious: Yes (Hospitalization)
  Sender: FDA-Public Use
  Company Number: US-JNJFOC-20080603550

PATIENT
  Sex: Male
  Weight: 108.86 kg

DRUGS (1)
  1. LEVAQUIN [Suspect]
     Indication: SINUSITIS
     Route: 048

REACTIONS (5)
  - DISORIENTATION [None]
  - HEADACHE [None]
  - MEMORY IMPAIRMENT [None]
  - MOOD ALTERED [None]
  - RESTLESSNESS [None]
